FAERS Safety Report 14215949 (Version 3)
Quarter: 2018Q1

REPORT INFORMATION
  Report Type: Report from Study
  Country: EC (occurrence: EC)
  Receive Date: 20171122
  Receipt Date: 20180314
  Transmission Date: 20180508
  Serious: Yes (Other)
  Sender: FDA-Public Use
  Company Number: EC-SEATTLE GENETICS-2017SGN02950

PATIENT
  Sex: Female
  Weight: 49.89 kg

DRUGS (2)
  1. BRENTUXIMAB VEDOTIN-MPI [Suspect]
     Active Substance: BRENTUXIMAB VEDOTIN
     Indication: HODGKIN^S DISEASE
     Dosage: 100 MG, UNK
     Route: 042
     Dates: start: 20170301
  2. BRENTUXIMAB VEDOTIN-MPI [Suspect]
     Active Substance: BRENTUXIMAB VEDOTIN
     Dosage: 83 MG, UNK
     Route: 042
     Dates: start: 20171213

REACTIONS (12)
  - Dizziness [Unknown]
  - Angina pectoris [Unknown]
  - Feeling abnormal [Unknown]
  - Nervous system disorder [Unknown]
  - Dyspnoea [Unknown]
  - Gait inability [Unknown]
  - Cranial nerve disorder [Unknown]
  - Aphasia [Unknown]
  - Hodgkin^s disease [Unknown]
  - Hypersensitivity [Unknown]
  - Hypoaesthesia [Unknown]
  - Heart rate increased [Unknown]
